FAERS Safety Report 5077786-9 (Version None)
Quarter: 2006Q3

REPORT INFORMATION
  Report Type: 
  Country: None (occurrence: None)
  Receive Date: 20060803
  Receipt Date: 20060720
  Transmission Date: 20061208
  Serious: Yes (Other)
  Sender: FDA-Public Use
  Company Number: THYM-11011

PATIENT
  Sex: 0

DRUGS (1)
  1. THYMOGLOBULIN [Suspect]

REACTIONS (2)
  - LABORATORY TEST ABNORMAL [None]
  - THROMBOTIC MICROANGIOPATHY [None]
